FAERS Safety Report 7655227-2 (Version None)
Quarter: 2011Q3

REPORT INFORMATION
  Report Type: 
  Country: None (occurrence: None)
  Receive Date: 20110804
  Receipt Date: 20110721
  Transmission Date: 20111222
  Serious: Yes (Disabling)
  Sender: FDA-Public Use
  Company Number: FR-CELGENEUS-056-21880-11072293

PATIENT
  Sex: Male
  Weight: 74 kg

DRUGS (7)
  1. ESOMEPRAZOLE MAGNESIUM [Concomitant]
     Indication: PROPHYLAXIS
     Route: 065
     Dates: start: 20060301
  2. LENALIDOMIDE [Suspect]
     Indication: B-CELL LYMPHOMA
     Dosage: 10 MILLIGRAM
     Route: 048
     Dates: start: 20101028
  3. LENALIDOMIDE [Suspect]
     Dosage: 10 MILLIGRAM
     Route: 048
     Dates: end: 20110606
  4. ROSUVASTATINE [Concomitant]
     Route: 065
     Dates: start: 19950101
  5. ACENOCOUMAROL [Concomitant]
     Route: 065
     Dates: start: 19950101
  6. BISOPROLOL FUMARATE [Concomitant]
     Route: 065
     Dates: start: 19950101
  7. VALSARTAN [Concomitant]
     Route: 065
     Dates: start: 20050101

REACTIONS (1)
  - GAMMA-GLUTAMYLTRANSFERASE INCREASED [None]
